FAERS Safety Report 9504358 (Version 2)
Quarter: 2013Q3

REPORT INFORMATION
  Report Type: Spontaneous
  Country: US (occurrence: US)
  Receive Date: 20130906
  Receipt Date: 20130912
  Transmission Date: 20140515
  Serious: No
  Sender: FDA-Public Use
  Company Number: US-009507513-1309USA002280

PATIENT
  Sex: Female

DRUGS (1)
  1. MIRALAX [Suspect]
     Indication: OFF LABEL USE
     Dosage: UNK, UNKNOWN
     Route: 048
     Dates: start: 20130825

REACTIONS (2)
  - Headache [Unknown]
  - Off label use [Unknown]
